FAERS Safety Report 16580031 (Version 1)
Quarter: 2019Q3

REPORT INFORMATION
  Report Type: Spontaneous
  Country: DE (occurrence: DE)
  Receive Date: 20190716
  Receipt Date: 20190716
  Transmission Date: 20191004
  Serious: Yes (Hospitalization)
  Sender: FDA-Public Use
  Company Number: DE-TEVA-2019-DE-1077128

PATIENT
  Age: 80 Year
  Sex: Female
  Weight: 130 kg

DRUGS (15)
  1. NEBIVOLOL. [Concomitant]
     Active Substance: NEBIVOLOL
     Dosage: 5 MG, 1-0-1-0, TABLETTEN
     Route: 048
  2. TOUJEO 300EINHEITEN/ML SOLOSTAR 1,5ML PEN [Concomitant]
     Dosage: SCHEMA, INJEKTIONS-/INFUSIONSL?SUNG
     Route: 058
  3. DEKRISTOL 20000I.E. [Concomitant]
     Dosage: 20000 IE / WOCHE, 1-0-0-0, KAPSELN
     Route: 048
  4. LYRICA [Concomitant]
     Active Substance: PREGABALIN
     Dosage: 25 MG, 1-0-1-0, KAPSELN
     Route: 048
  5. MUCOFALK 3,25G/BEUTEL [Concomitant]
     Dosage: 3.25 G, 0.5-0-0-0, BEUTEL
     Route: 048
  6. L-THYROXIN 50 [Concomitant]
     Active Substance: LEVOTHYROXINE SODIUM
     Dosage: 50 ?G, 1-0-0-0, TABLETTEN
     Route: 048
  7. FENTANYL. [Concomitant]
     Active Substance: FENTANYL
     Dosage: 25 ?G/H, ALLE 3 TAGE, ZULETZT AM 21.02.18, PFLASTER TRANSDERMAL
     Route: 062
  8. APIDRA [Concomitant]
     Active Substance: INSULIN GLULISINE
     Dosage: SCHEMA, INJEKTIONS-/INFUSIONSL?SUNG
     Route: 058
  9. HYDROXYCHLOROQUINE SULFATE. [Suspect]
     Active Substance: HYDROXYCHLOROQUINE SULFATE
     Dosage: 200 MG, 1-0-0-0, TABLETTEN
     Route: 048
  10. RAMIPRIL. [Concomitant]
     Active Substance: RAMIPRIL
     Dosage: 2.5 MG, 1-0-0-0, TABLETTEN
     Route: 048
  11. PREDNISOLONE. [Suspect]
     Active Substance: PREDNISOLONE
     Dosage: 5 MG, 1-0-0-0, TABLETTEN
     Route: 048
  12. FUROSEMID [Concomitant]
     Active Substance: FUROSEMIDE
     Dosage: 125 MG, 1-1-0-0, TABLETTEN
     Route: 048
  13. PANTOZOL [Concomitant]
     Active Substance: PANTOPRAZOLE SODIUM
     Dosage: 40 MG, 1-0-0-0, TABLETTEN
     Route: 048
  14. SIMVASTATIN. [Concomitant]
     Active Substance: SIMVASTATIN
     Dosage: 20 MG, 0-0-1-0, TABLETTEN
     Route: 048
  15. ASS 100 [Concomitant]
     Active Substance: ASPIRIN
     Dosage: 100 MG, 1-0-0-0, TABLETTEN
     Route: 048

REACTIONS (3)
  - Pyrexia [Unknown]
  - Dyspnoea [Unknown]
  - Pain [Unknown]
